FAERS Safety Report 21230253 (Version 3)
Quarter: 2022Q3

REPORT INFORMATION
  Report Type: Report from Study
  Country: CN (occurrence: CN)
  Receive Date: 20220818
  Receipt Date: 20220913
  Transmission Date: 20221027
  Serious: Yes (Hospitalization)
  Sender: FDA-Public Use
  Company Number: CN-JNJFOC-20220810797

PATIENT
  Age: 54 Year
  Sex: Female
  Weight: 68.1 kg

DRUGS (4)
  1. AMIVANTAMAB [Suspect]
     Active Substance: AMIVANTAMAB
     Indication: Non-small cell lung cancer
     Dosage: VD D1
     Route: 065
     Dates: start: 20220726
  2. AMIVANTAMAB [Suspect]
     Active Substance: AMIVANTAMAB
     Dosage: VD D2
     Route: 065
     Dates: start: 20220727
  3. CARBOPLATIN [Suspect]
     Active Substance: CARBOPLATIN
     Indication: Non-small cell lung cancer
     Dosage: VD D1, MOST RECENT DOSE RECEIVED 26-JUL-2022
     Route: 065
     Dates: start: 20220726
  4. PEMETREXED [Suspect]
     Active Substance: PEMETREXED
     Indication: Non-small cell lung cancer
     Dosage: VD D1
     Route: 065
     Dates: start: 20220726

REACTIONS (3)
  - Thrombocytopenia [Recovered/Resolved]
  - Neutropenia [Recovered/Resolved]
  - Leukopenia [Recovered/Resolved]

NARRATIVE: CASE EVENT DATE: 20220802
